FAERS Safety Report 5772826-3 (Version None)
Quarter: 2008Q2

REPORT INFORMATION
  Report Type: 
  Country: None (occurrence: None)
  Receive Date: 20080613
  Receipt Date: 20080605
  Transmission Date: 20081010
  Serious: Yes (Life-Threatening, Hospitalization)
  Sender: FDA-Public Use
  Company Number: US-GILEAD-2008-0014993

PATIENT
  Sex: Female
  Weight: 111.9 kg

DRUGS (15)
  1. AMBRISENTAN [Suspect]
     Indication: PULMONARY ARTERIAL HYPERTENSION
     Dates: start: 20071127, end: 20080115
  2. AMBRISENTAN [Suspect]
     Dates: start: 20080118
  3. OXYGEN [Concomitant]
     Dates: end: 20080116
  4. CARVEDILOL [Concomitant]
     Dates: end: 20080116
  5. LISINOPRIL [Concomitant]
     Dates: end: 20080116
  6. DIGOXIN [Concomitant]
     Dates: end: 20080116
  7. FUROSEMIDE [Concomitant]
     Dates: end: 20080116
  8. METOLAZONE [Concomitant]
     Dates: end: 20080116
  9. ALLOPURINOL [Concomitant]
     Dates: end: 20080116
  10. GLUCOVANCE [Concomitant]
     Dates: end: 20080116
  11. ASPIRIN [Concomitant]
     Dates: end: 20080116
  12. POTASSIUM CHLORIDE [Concomitant]
     Dates: end: 20080116
  13. TYLENOL W/ CODEINE NO. 3 [Concomitant]
     Dates: start: 20070620, end: 20080116
  14. ZANTAC [Concomitant]
     Dates: end: 20080116
  15. AMBIEN [Concomitant]
     Dates: start: 20080102, end: 20080116

REACTIONS (2)
  - SHOCK HAEMORRHAGIC [None]
  - VAGINAL HAEMORRHAGE [None]
